FAERS Safety Report 4874129-8 (Version None)
Quarter: 2005Q4

REPORT INFORMATION
  Report Type: 
  Country: None (occurrence: None)
  Receive Date: 20051201
  Receipt Date: 20050808
  Transmission Date: 20060501
  Serious: No
  Sender: FDA-Public Use
  Company Number: 2005PV000983

PATIENT
  Age: 37 Year
  Sex: Female
  Weight: 58.0604 kg

DRUGS (8)
  1. BYETTA [Suspect]
     Indication: DIABETES MELLITUS NON-INSULIN-DEPENDENT
     Dosage: SEE IMAGE
     Route: 058
     Dates: start: 20050629, end: 20050727
  2. BYETTA [Suspect]
     Indication: DIABETES MELLITUS NON-INSULIN-DEPENDENT
     Dosage: SEE IMAGE
     Route: 058
     Dates: start: 20050727
  3. GLUCOPHAGE [Concomitant]
  4. ACTOS [Concomitant]
  5. DIOVAN [Concomitant]
  6. BIRTH CONTROL PILL [Concomitant]
  7. MULTI-VITAMIN [Concomitant]
  8. AMARYL [Concomitant]

REACTIONS (7)
  - ASTHENIA [None]
  - DECREASED APPETITE [None]
  - FATIGUE [None]
  - NAUSEA [None]
  - PAROSMIA [None]
  - VOMITING [None]
  - WEIGHT DECREASED [None]
